FAERS Safety Report 9186682 (Version 1)
Quarter: 2012Q4

REPORT INFORMATION
  Report Type: 
  Country: US (occurrence: US)
  Receive Date: 20121102
  Receipt Date: 20121102
  Transmission Date: 20130627
  Serious: Yes (Other)
  Sender: FDA-Public Use
  Company Number: US-JNJFOC-20121014631

PATIENT

DRUGS (1)
  1. REMICADE [Suspect]
     Indication: COLITIS ULCERATIVE
     Dosage: start date: approximately 2 years.
     Route: 042

REACTIONS (3)
  - Rectal abscess [Unknown]
  - Herpes simplex [Unknown]
  - Pityriasis rosea [Unknown]
